FAERS Safety Report 15953931 (Version 3)
Quarter: 2019Q2

REPORT INFORMATION
  Report Type: Spontaneous
  Country: US (occurrence: US)
  Receive Date: 20190212
  Receipt Date: 20190404
  Transmission Date: 20190711
  Serious: No
  Sender: FDA-Public Use
  Company Number: US-PFIZER INC-2017070951

PATIENT
  Age: 13 Year
  Sex: Male
  Weight: 70 kg

DRUGS (4)
  1. GENOTROPIN [Suspect]
     Active Substance: SOMATROPIN
     Dosage: UNK, 1X/DAY (3.8, ONCE AT NIGHT)
     Dates: end: 201702
  2. GENOTROPIN [Suspect]
     Active Substance: SOMATROPIN
     Indication: GROWTH FAILURE
     Dosage: 3 MG, DAILY
     Dates: end: 201702
  3. GENOTROPIN [Suspect]
     Active Substance: SOMATROPIN
     Dosage: UNK, 1X/DAY (4.0 (UNITS NOT PROBED) EVERY NIGHT)
  4. GENOTROPIN [Suspect]
     Active Substance: SOMATROPIN
     Dosage: 4 MG, DAILY

REACTIONS (6)
  - Product dose omission [Unknown]
  - Haematocrit decreased [Unknown]
  - Blood creatinine decreased [Unknown]
  - Blood alkaline phosphatase increased [Unknown]
  - Vitamin D decreased [Unknown]
  - Haemoglobin decreased [Unknown]
